FAERS Safety Report 18999615 (Version 1)
Quarter: 2021Q1

REPORT INFORMATION
  Report Type: Spontaneous
  Country: CN (occurrence: CN)
  Receive Date: 20210311
  Receipt Date: 20210311
  Transmission Date: 20210420
  Serious: Yes (Hospitalization)
  Sender: FDA-Public Use
  Company Number: CN-PFIZER INC-2021235904

PATIENT
  Age: 24 Year
  Sex: Female
  Weight: 47 kg

DRUGS (2)
  1. METHOTREXATE SODIUM. [Suspect]
     Active Substance: METHOTREXATE SODIUM
     Indication: ABORTION OF ECTOPIC PREGNANCY
     Dosage: 18.000 MG, 1X/DAY
     Route: 030
     Dates: start: 20210220, end: 20210224
  2. MIFEPRISTONE [Concomitant]
     Active Substance: MIFEPRISTONE
     Indication: ABORTION OF ECTOPIC PREGNANCY
     Dosage: UNK
     Dates: start: 20210220, end: 20210224

REACTIONS (4)
  - Oropharyngeal pain [Recovering/Resolving]
  - Rash [Recovering/Resolving]
  - Hepatic function abnormal [Recovering/Resolving]
  - Mouth ulceration [Recovering/Resolving]

NARRATIVE: CASE EVENT DATE: 20210224
